FAERS Safety Report 25074560 (Version 1)
Quarter: 2025Q1

REPORT INFORMATION
  Report Type: Spontaneous
  Country: FR (occurrence: FR)
  Receive Date: 20250313
  Receipt Date: 20250313
  Transmission Date: 20250409
  Serious: Yes (Life-Threatening, Hospitalization)
  Sender: BRISTOL-MYERS SQUIBB COMPANY
  Company Number: None

PATIENT
  Age: 45 Year
  Sex: Male

DRUGS (4)
  1. REVLIMID [Suspect]
     Active Substance: LENALIDOMIDE
     Indication: Light chain disease
     Route: 048
     Dates: start: 20241122, end: 20250103
  2. DEXAMETHASONE ACETATE [Suspect]
     Active Substance: DEXAMETHASONE ACETATE
     Indication: Light chain disease
     Route: 048
     Dates: start: 20241122, end: 20250103
  3. VELCADE [Suspect]
     Active Substance: BORTEZOMIB
     Indication: Light chain disease
     Route: 042
     Dates: start: 20241122, end: 20241220
  4. DARATUMUMAB [Suspect]
     Active Substance: DARATUMUMAB
     Indication: Light chain disease
     Route: 042
     Dates: start: 20241122, end: 20250103

REACTIONS (1)
  - Confusional state [Recovered/Resolved]

NARRATIVE: CASE EVENT DATE: 20250103
